FAERS Safety Report 23862372 (Version 1)
Quarter: 2024Q2

REPORT INFORMATION
  Report Type: Spontaneous
  Country: PT (occurrence: PT)
  Receive Date: 20240516
  Receipt Date: 20240516
  Transmission Date: 20240715
  Serious: Yes (Other)
  Sender: FDA-Public Use
  Company Number: None

PATIENT
  Age: 72 Year
  Sex: Female

DRUGS (1)
  1. OXALIPLATIN [Suspect]
     Active Substance: OXALIPLATIN
     Dosage: UNK; ^200 MG^ (NO MORE DETAILED INFORMATION)
     Dates: start: 20240325

REACTIONS (4)
  - Sensory disturbance [Recovered/Resolved]
  - Hand deformity [Recovered/Resolved]
  - Bronchospasm [Recovered/Resolved]
  - Stridor [Recovered/Resolved]

NARRATIVE: CASE EVENT DATE: 20240325
